FAERS Safety Report 8377107-X (Version None)
Quarter: 2012Q2

REPORT INFORMATION
  Report Type: 
  Country: None (occurrence: None)
  Receive Date: 20120522
  Receipt Date: 20120514
  Transmission Date: 20120825
  Serious: Yes (Other)
  Sender: FDA-Public Use
  Company Number: US-ROCHE-783735

PATIENT
  Sex: Male
  Weight: 52.21 kg

DRUGS (10)
  1. ACCUTANE [Suspect]
     Indication: ACNE
     Route: 065
     Dates: start: 20001201, end: 20010601
  2. PREDNISONE TAB [Concomitant]
  3. ROWASA [Concomitant]
  4. DIPHENOXYLATE [Concomitant]
  5. COLAZAL [Concomitant]
  6. PURINETHOL [Concomitant]
  7. COLYTE [Concomitant]
  8. NEXIUM [Concomitant]
  9. BENTYL [Concomitant]
  10. PENTASA [Concomitant]

REACTIONS (4)
  - STRESS [None]
  - COLITIS ULCERATIVE [None]
  - DEPRESSION [None]
  - INFLAMMATORY BOWEL DISEASE [None]
